FAERS Safety Report 5428533-X (Version None)
Quarter: 2007Q3

REPORT INFORMATION
  Report Type: 
  Country: None (occurrence: None)
  Receive Date: 20070731
  Receipt Date: 20070429
  Transmission Date: 20080115
  Serious: No
  Sender: FDA-Public Use
  Company Number: US200704006453

PATIENT
  Age: 58 Year
  Sex: Female
  Weight: 95.7 kg

DRUGS (10)
  1. BYETTA [Suspect]
     Indication: TYPE 2 DIABETES MELLITUS
     Dosage: 5 UG, 2/D, SUBCUTANEOUS : 10 UG, 2/D, SUBCUTANEOUS : 5 UG, OTHER SUBCUTANEOUS
     Route: 058
     Dates: start: 20060101, end: 20060101
  2. BYETTA [Suspect]
     Indication: TYPE 2 DIABETES MELLITUS
     Dosage: 5 UG, 2/D, SUBCUTANEOUS : 10 UG, 2/D, SUBCUTANEOUS : 5 UG, OTHER SUBCUTANEOUS
     Route: 058
     Dates: start: 20060101, end: 20060601
  3. BYETTA [Suspect]
     Indication: TYPE 2 DIABETES MELLITUS
     Dosage: 5 UG, 2/D, SUBCUTANEOUS : 10 UG, 2/D, SUBCUTANEOUS : 5 UG, OTHER SUBCUTANEOUS
     Route: 058
     Dates: start: 20061101, end: 20061101
  4. SINGULAIR [Concomitant]
  5. THEOPHYLLINE [Concomitant]
  6. ADVAIR DISKUS(FLUTICASONE PROPIONATE, SALMETEROL XINAFOATE) [Concomitant]
  7. LEVEMIR(INSULIN DETEMIR) [Concomitant]
  8. METFORMIN HCL [Concomitant]
  9. GLIMEPIRIDE [Concomitant]
  10. GLYBURIDE [Concomitant]

REACTIONS (11)
  - BLOOD GLUCOSE DECREASED [None]
  - DEPRESSED LEVEL OF CONSCIOUSNESS [None]
  - DIZZINESS [None]
  - DRUG HYPERSENSITIVITY [None]
  - HYPOACUSIS [None]
  - INJECTION SITE IRRITATION [None]
  - MALAISE [None]
  - NAUSEA [None]
  - THINKING ABNORMAL [None]
  - VOMITING [None]
  - WEIGHT DECREASED [None]
